FAERS Safety Report 18749947 (Version 1)
Quarter: 2021Q1

REPORT INFORMATION
  Report Type: Spontaneous
  Country: US (occurrence: US)
  Receive Date: 20210118
  Receipt Date: 20210118
  Transmission Date: 20210419
  Serious: No
  Sender: FDA-Public Use
  Company Number: US-JNJFOC-20210107519

PATIENT
  Age: 66 Year
  Sex: Female
  Weight: 77.18 kg

DRUGS (1)
  1. VISINE A MULTI?ACTION EYE ALLERGY RELIEF [Suspect]
     Active Substance: NAPHAZOLINE HYDROCHLORIDE\PHENIRAMINE MALEATE
     Indication: OCULAR HYPERAEMIA
     Dosage: 1 DROP EACH EYE TWICE OR ONCE A DAY, IT DEPENDS SOMETIMES 3 TIMES / DATE OF DRUG LAST ADMIN: 04?JAN?
     Route: 047

REACTIONS (2)
  - Product package associated injury [Unknown]
  - Product packaging issue [Unknown]

NARRATIVE: CASE EVENT DATE: 20210104
